FAERS Safety Report 4621474-7 (Version None)
Quarter: 2005Q1

REPORT INFORMATION
  Report Type: 
  Country: None (occurrence: None)
  Receive Date: 20050329
  Receipt Date: 20050314
  Transmission Date: 20050727
  Serious: Yes (Hospitalization)
  Sender: FDA-Public Use
  Company Number: GXKR2005US00696

PATIENT
  Age: 49 Year
  Sex: Female

DRUGS (10)
  1. FLUOXETINE [Suspect]
     Dosage: 10 MG, QD
  2. IMPRAMINE HCL [Suspect]
     Dosage: 50 MG AT BEDTIME
  3. LEVOFLOXACIN [Suspect]
     Indication: PYELONEPHRITIS
     Dosage: 500 MG, QD
  4. GABAPENTIN [Concomitant]
  5. PROPRANOLOL [Concomitant]
  6. CARISOPRODOL [Concomitant]
  7. MIRTAZAPINE [Concomitant]
  8. LORATADINE/PSEUDOEHEDRINE SULFATE (LORATADINE, PSEUDOEPHEDRINE SULFATE [Concomitant]
  9. CEFTRIAXONE [Concomitant]
  10. FERROUS SULFATE TAB [Concomitant]

REACTIONS (4)
  - CHEST DISCOMFORT [None]
  - DRUG INTERACTION [None]
  - DYSPNOEA [None]
  - ELECTROCARDIOGRAM QT PROLONGED [None]
